FAERS Safety Report 13933414 (Version 4)
Quarter: 2018Q1

REPORT INFORMATION
  Report Type: Spontaneous
  Country: JP (occurrence: JP)
  Receive Date: 20170904
  Receipt Date: 20180205
  Transmission Date: 20180508
  Serious: Yes (Life-Threatening, Hospitalization)
  Sender: FDA-Public Use
  Company Number: PHJP2017JP026876

PATIENT
  Age: 77 Year
  Sex: Male

DRUGS (16)
  1. COSENTYX [Suspect]
     Active Substance: SECUKINUMAB
     Indication: PUSTULAR PSORIASIS
     Dosage: 300 MG, UNK
     Route: 058
     Dates: start: 20170823
  2. TIGASON [Concomitant]
     Active Substance: ETRETINATE
     Dosage: 40 MG, UNK
     Route: 048
     Dates: start: 20170506, end: 20170511
  3. TIGASON [Concomitant]
     Active Substance: ETRETINATE
     Dosage: 40 MG, UNK
     Route: 048
     Dates: start: 20170602, end: 20170609
  4. SALICYLIC ACID OINTMENT [Concomitant]
     Indication: PRODUCT USED FOR UNKNOWN INDICATION
     Dosage: UNK UNK, QD
     Route: 065
     Dates: start: 20170516
  5. ZOSYN [Concomitant]
     Active Substance: PIPERACILLIN SODIUM\TAZOBACTAM SODIUM
     Indication: PRODUCT USED FOR UNKNOWN INDICATION
     Dosage: 4.5 MG, TID
     Route: 041
     Dates: start: 20170828, end: 20170904
  6. TIGASON [Concomitant]
     Active Substance: ETRETINATE
     Dosage: 50 MG, UNK
     Route: 048
     Dates: start: 20170610, end: 20170619
  7. FLORINEF ACETATE [Concomitant]
     Active Substance: FLUDROCORTISONE ACETATE
     Indication: PRODUCT USED FOR UNKNOWN INDICATION
     Dosage: 0.05 G, QD
     Route: 065
     Dates: start: 20170520
  8. NEXIUM [Concomitant]
     Active Substance: ESOMEPRAZOLE MAGNESIUM
     Indication: PRODUCT USED FOR UNKNOWN INDICATION
     Dosage: 20 MG, QD
     Route: 065
     Dates: start: 20170502
  9. ANTEBATE [Concomitant]
     Active Substance: BETAMETHASONE DIPROPIONATE
     Indication: PRODUCT USED FOR UNKNOWN INDICATION
     Dosage: UNK UNK, QD
     Route: 065
     Dates: start: 20170516
  10. MAGNESIUM OXIDE. [Concomitant]
     Active Substance: MAGNESIUM OXIDE
     Indication: PRODUCT USED FOR UNKNOWN INDICATION
     Dosage: 50 MG, TID
     Route: 065
     Dates: start: 20170505
  11. TIGASON [Concomitant]
     Active Substance: ETRETINATE
     Indication: PUSTULAR PSORIASIS
     Dosage: 20 MG, UNK
     Route: 048
     Dates: start: 20170502, end: 20170505
  12. PREDONINE [Concomitant]
     Active Substance: PREDNISOLONE
     Dosage: 5 TO 35 MG, UNK
     Route: 065
     Dates: start: 20170603
  13. PREDONINE [Concomitant]
     Active Substance: PREDNISOLONE
     Dosage: 20 MG, UNK
     Route: 065
     Dates: start: 20170610
  14. METHOTREXATE. [Concomitant]
     Active Substance: METHOTREXATE
     Indication: PRODUCT USED FOR UNKNOWN INDICATION
     Dosage: UNK
     Route: 048
  15. TIGASON [Concomitant]
     Active Substance: ETRETINATE
     Dosage: 40 MG, UNK
     Route: 048
     Dates: start: 20170620
  16. PREDONINE [Concomitant]
     Active Substance: PREDNISOLONE
     Indication: PSORIASIS
     Dosage: 5 TO 35 MG, UNK
     Route: 048
     Dates: start: 20170502, end: 20170518

REACTIONS (7)
  - Hypernatraemia [Recovered/Resolved]
  - Dehydration [Not Recovered/Not Resolved]
  - Somnolence [Recovered/Resolved]
  - Pneumonia aspiration [Recovered/Resolved]
  - Pleural effusion [Unknown]
  - Rib fracture [Unknown]
  - Arteriosclerosis [Unknown]

NARRATIVE: CASE EVENT DATE: 20170825
